FAERS Safety Report 9470633 (Version 1)
Quarter: 2013Q3

REPORT INFORMATION
  Report Type: Spontaneous
  Country: FR (occurrence: FR)
  Receive Date: 20130822
  Receipt Date: 20130822
  Transmission Date: 20140515
  Serious: Yes (Hospitalization)
  Sender: FDA-Public Use
  Company Number: FR-PFIZER INC-2013239591

PATIENT
  Age: 2 Year
  Sex: Female
  Weight: 11 kg

DRUGS (6)
  1. ADVIL ENFANTS ET NOURRISSONS [Suspect]
     Indication: PYREXIA
     Dosage: 20 MG/1ML
     Route: 048
     Dates: start: 20130719, end: 20130722
  2. PARACETAMOL [Concomitant]
     Indication: PYREXIA
     Dosage: UNK
     Route: 048
     Dates: start: 20130719
  3. ORELOX [Concomitant]
     Indication: EAR INFECTION
     Dosage: 40 MG/ 5 ML, UNK
     Route: 048
     Dates: start: 20130720, end: 20130722
  4. INEXIUM [Concomitant]
     Indication: GASTROOESOPHAGEAL REFLUX DISEASE
     Dosage: 10 MG, 1X/DAY
     Route: 048
  5. MOTILIUM ^BYK GULDEN^ [Concomitant]
     Dosage: 1 DF, 1X/DAY, IN THE EVENING
     Route: 048
  6. ATARAX [Concomitant]
     Dosage: 2 TEASPOONFUL IN THE EVENING
     Route: 048

REACTIONS (2)
  - Haematemesis [Recovered/Resolved]
  - Gastritis [Recovered/Resolved]
